FAERS Safety Report 9795787 (Version 1)
Quarter: 2014Q1

REPORT INFORMATION
  Report Type: Spontaneous
  Country: DK (occurrence: DK)
  Receive Date: 20140103
  Receipt Date: 20140103
  Transmission Date: 20141002
  Serious: Yes (Disabling)
  Sender: FDA-Public Use
  Company Number: DK-BAYER-2013-159359

PATIENT
  Age: 66 Year
  Sex: Male
  Weight: 83 kg

DRUGS (17)
  1. GADOLINIUM IN UNSPECIFIED DRUG [Suspect]
     Indication: ANGIOGRAM
     Dosage: UNK
     Route: 042
     Dates: start: 20050107, end: 20050107
  2. GADOLINIUM IN UNSPECIFIED DRUG [Suspect]
     Indication: RENAL TRANSPLANT
  3. ATACAND [CANDESARTAN CILEXETIL] [Concomitant]
     Dosage: 3 MG, UNK
     Route: 048
  4. ATACAND [CANDESARTAN CILEXETIL] [Concomitant]
     Dosage: 8 MG X1
     Route: 048
  5. EPREX [Concomitant]
     Dosage: 5000 +6000 LE WEEKLY
     Route: 042
  6. IMODIUM [Concomitant]
     Route: 048
  7. MANDOLGIN [Concomitant]
     Dosage: 50 MG, PRN MAXIMUM 3 TIMES DAILY
     Route: 048
  8. NEXIUM [Concomitant]
     Dosage: 20 MG X 1
     Route: 048
  9. NORVASC [Concomitant]
     Dosage: 5 MG X 1
     Route: 048
  10. PANODIL [Concomitant]
     Dosage: 1 G, X 2
     Route: 048
  11. PHOS-EX [Concomitant]
     Dosage: 250 MG, X3
     Route: 048
  12. RESONIUM [Concomitant]
     Dosage: 15 G X1
     Route: 054
  13. VENOFER [Concomitant]
     Dosage: 100 MG X1 PER MONTH
     Route: 042
  14. VIBEDEN [Concomitant]
     Dosage: 1 MG, OF EACH QUARTER
     Route: 030
  15. ZYRTEC [Concomitant]
     Dosage: 10 MG X1
     Route: 048
  16. RENAGEL [SEVELAMER] [Concomitant]
     Dosage: 4 G, UNK
     Route: 048
  17. RENAGEL [SEVELAMER] [Concomitant]
     Dosage: 800 MG, 5 X 3

REACTIONS (3)
  - Nephrogenic systemic fibrosis [Not Recovered/Not Resolved]
  - Respiratory failure [Not Recovered/Not Resolved]
  - Pulmonary hypertension [Not Recovered/Not Resolved]
